FAERS Safety Report 13521760 (Version 1)
Quarter: 2017Q2

REPORT INFORMATION
  Report Type: Spontaneous
  Country: US (occurrence: US)
  Receive Date: 20170508
  Receipt Date: 20170508
  Transmission Date: 20170830
  Serious: Yes (Life-Threatening, Hospitalization)
  Sender: FDA-Public Use
  Company Number: US-BION-006256

PATIENT
  Sex: Female

DRUGS (4)
  1. LISDEXAMFETAMINE DIMESYLATE [Concomitant]
     Active Substance: LISDEXAMFETAMINE DIMESYLATE
     Indication: NARCOLEPSY
  2. LOPERAMIDE HYDROCHLORIDE UNKNOWN PRODUCT [Suspect]
     Active Substance: LOPERAMIDE HYDROCHLORIDE
     Dosage: 200 TO 400 MG PER DAY
  3. LORAZEPAM. [Concomitant]
     Active Substance: LORAZEPAM
     Indication: ANXIETY
     Dosage: 1 MG PER DAY AS NEEDED
  4. FLUVOXAMINE [Concomitant]
     Active Substance: FLUVOXAMINE
     Indication: OBSESSIVE-COMPULSIVE DISORDER

REACTIONS (14)
  - Drug withdrawal syndrome [Recovering/Resolving]
  - Abdominal pain [Recovering/Resolving]
  - Arrhythmia [Unknown]
  - Irritability [Recovering/Resolving]
  - Depressed mood [Recovering/Resolving]
  - Anxiety [Recovering/Resolving]
  - Myalgia [Recovering/Resolving]
  - Piloerection [Recovering/Resolving]
  - Torsade de pointes [Unknown]
  - Mydriasis [Recovering/Resolving]
  - Syncope [Unknown]
  - Drug use disorder [Unknown]
  - Yawning [Recovering/Resolving]
  - Rhinorrhoea [Recovering/Resolving]
